FAERS Safety Report 7947121-4 (Version None)
Quarter: 2011Q4

REPORT INFORMATION
  Report Type: 
  Country: None (occurrence: None)
  Receive Date: 20111129
  Receipt Date: 20111115
  Transmission Date: 20120403
  Serious: Yes (Hospitalization)
  Sender: FDA-Public Use
  Company Number: US-WATSON-2011-19363

PATIENT
  Sex: Female

DRUGS (2)
  1. TRELSTAR [Suspect]
     Indication: BREAST CANCER
     Dosage: 3.75MG, ONCE A MONTH
     Route: 030
     Dates: start: 20100831
  2. TAMOXIFEN CITRATE [Suspect]
     Indication: BREAST CANCER
     Dosage: 20 MG, ONCE A DAY
     Route: 048
     Dates: start: 20101123

REACTIONS (1)
  - CERVICAL POLYP [None]
